FAERS Safety Report 17582660 (Version 1)
Quarter: 2020Q1

REPORT INFORMATION
  Report Type: Spontaneous
  Country: US (occurrence: US)
  Receive Date: 20200325
  Receipt Date: 20200325
  Transmission Date: 20200409
  Serious: No
  Sender: FDA-Public Use
  Company Number: US-ASTRAZENECA-2019SF26405

PATIENT
  Age: 24118 Day
  Sex: Female

DRUGS (1)
  1. BYDUREON BCISE [Suspect]
     Active Substance: EXENATIDE
     Indication: TYPE 2 DIABETES MELLITUS
     Route: 065

REACTIONS (4)
  - Decreased appetite [Unknown]
  - Nausea [Not Recovered/Not Resolved]
  - Eructation [Unknown]
  - Headache [Unknown]

NARRATIVE: CASE EVENT DATE: 20190828
